FAERS Safety Report 8305083-4 (Version None)
Quarter: 2012Q2

REPORT INFORMATION
  Report Type: 
  Country: None (occurrence: None)
  Receive Date: 20120423
  Receipt Date: 20120413
  Transmission Date: 20120825
  Serious: Yes (Disabling)
  Sender: FDA-Public Use
  Company Number: CA-ASTRAZENECA-2012SE24489

PATIENT
  Sex: Male

DRUGS (1)
  1. CRESTOR [Suspect]
     Indication: BLOOD CHOLESTEROL
     Route: 048

REACTIONS (5)
  - FEELING ABNORMAL [None]
  - DYSSTASIA [None]
  - ARTHRALGIA [None]
  - FATIGUE [None]
  - ADVERSE DRUG REACTION [None]
